FAERS Safety Report 20631617 (Version 1)
Quarter: 2022Q1

REPORT INFORMATION
  Report Type: Spontaneous
  Country: US (occurrence: None)
  Receive Date: 20220324
  Receipt Date: 20220324
  Transmission Date: 20220424
  Serious: Yes (Other)
  Sender: FDA-Public Use
  Company Number: US-ROCHE-3052888

PATIENT
  Age: 77 Year
  Sex: Female
  Weight: 80.8 kg

DRUGS (2)
  1. ACTIVASE [Suspect]
     Active Substance: ALTEPLASE
     Indication: Ischaemic stroke
     Dosage: FREQUENCY - ONCE
     Route: 042
     Dates: start: 20220310, end: 20220310
  2. ACTIVASE [Suspect]
     Active Substance: ALTEPLASE

REACTIONS (3)
  - Poor quality product administered [Unknown]
  - Inappropriate schedule of product administration [Unknown]
  - No adverse event [Unknown]

NARRATIVE: CASE EVENT DATE: 20220314
